FAERS Safety Report 8259552-6 (Version None)
Quarter: 2012Q2

REPORT INFORMATION
  Report Type: 
  Country: None (occurrence: None)
  Receive Date: 20120404
  Receipt Date: 20120306
  Transmission Date: 20120825
  Serious: Yes (Hospitalization, Other)
  Sender: FDA-Public Use
  Company Number: KR-MERCK-1203USA02542

PATIENT
  Age: 51 Year
  Sex: Male
  Weight: 53 kg

DRUGS (38)
  1. ISENTRESS [Suspect]
     Indication: HIV INFECTION
     Route: 048
     Dates: start: 20110430
  2. ETRAVIRINE [Concomitant]
     Indication: HIV INFECTION
     Route: 048
     Dates: start: 20110430
  3. PYRIDOXINE [Concomitant]
     Indication: PULMONARY TUBERCULOSIS
     Route: 048
     Dates: start: 20110621
  4. AMITRIPTYLINE HYDROCHLORIDE [Concomitant]
     Indication: POLYNEUROPATHY
     Route: 048
     Dates: start: 20110909
  5. ETHAMBUTOL HYDROCHLORIDE [Concomitant]
     Indication: PULMONARY TUBERCULOSIS
     Route: 048
     Dates: start: 20110621, end: 20111111
  6. GABAPENTIN [Concomitant]
     Indication: POLYNEUROPATHY
     Route: 048
     Dates: start: 20110729
  7. GANCICLOVIR [Concomitant]
     Indication: CYTOMEGALOVIRUS OESOPHAGITIS
     Route: 042
     Dates: start: 20110426, end: 20110514
  8. LAMIVUDINE [Concomitant]
     Indication: HIV INFECTION
     Route: 048
     Dates: start: 20080101, end: 20110101
  9. LEVOCLOPERASTINE FENDIZOATE [Concomitant]
     Indication: PNEUMOCYSTIS JIROVECI PNEUMONIA
     Route: 048
     Dates: start: 20110429, end: 20110502
  10. RITONAVIR [Concomitant]
     Indication: HIV INFECTION
     Route: 048
     Dates: start: 20110430
  11. CEFTRIAXONE SODIUM [Concomitant]
     Indication: PNEUMOCYSTIS JIROVECI PNEUMONIA
     Route: 042
     Dates: start: 20110423, end: 20110426
  12. INSULIN GLARGINE [Concomitant]
     Route: 058
     Dates: start: 20110625, end: 20110908
  13. METHYLPREDNISOLONE SODIUM SUCCINATE [Concomitant]
     Indication: PNEUMOCYSTIS JIROVECI PNEUMONIA
     Route: 042
     Dates: start: 20110501, end: 20110501
  14. CEFTRIAXONE SODIUM [Concomitant]
     Route: 042
     Dates: start: 20110429, end: 20110501
  15. CODEINE PHOSPHATE [Concomitant]
     Indication: PNEUMOCYSTIS JIROVECI PNEUMONIA
     Route: 048
     Dates: start: 20110429, end: 20110430
  16. HYDROCHLOROTHIAZIDE AND SPIRONOLACTONE [Concomitant]
     Route: 048
     Dates: start: 20110903, end: 20110909
  17. INSULIN GLARGINE [Concomitant]
     Indication: DIABETES MELLITUS
     Route: 058
     Dates: start: 20110504, end: 20110624
  18. ISONIAZID [Concomitant]
     Indication: PULMONARY TUBERCULOSIS
     Route: 048
     Dates: start: 20110621
  19. LOPINAVIR AND RITONAVIR [Concomitant]
     Indication: HIV INFECTION
     Route: 048
     Dates: start: 20080101, end: 20110401
  20. METFORMIN HYDROCHLORIDE [Concomitant]
     Indication: DIABETES MELLITUS
     Route: 048
     Dates: start: 20110508, end: 20110510
  21. PANTOPRAZOLE SODIUM [Concomitant]
     Indication: CYTOMEGALOVIRUS OESOPHAGITIS
     Route: 042
     Dates: start: 20110512, end: 20110524
  22. PREDNISOLONE ACETATE [Concomitant]
     Indication: PNEUMOCYSTIS JIROVECI PNEUMONIA
     Route: 048
     Dates: start: 20110506, end: 20110508
  23. DEXAMETHASONE [Concomitant]
     Indication: PNEUMOCYSTIS JIROVECI PNEUMONIA
     Route: 041
     Dates: start: 20110503, end: 20110505
  24. PREDNISOLONE ACETATE [Concomitant]
     Route: 048
     Dates: start: 20110502, end: 20110502
  25. CLINDAMYCIN HYDROCHLORIDE [Concomitant]
     Indication: PNEUMOCYSTIS JIROVECI PNEUMONIA
     Route: 048
     Dates: start: 20110426, end: 20110430
  26. DARUNAVIR [Concomitant]
     Indication: HIV INFECTION
     Route: 048
     Dates: start: 20110430
  27. DEXAMETHASONE [Concomitant]
     Route: 041
     Dates: start: 20110509, end: 20110511
  28. RIFABUTIN [Concomitant]
     Indication: PULMONARY TUBERCULOSIS
     Route: 048
     Dates: start: 20110621
  29. SULFAMETHOXAZOLE AND TRIMETHOPRIM [Concomitant]
     Indication: PNEUMOCYSTIS JIROVECI PNEUMONIA
     Route: 048
     Dates: start: 20110430, end: 20110501
  30. FLUCONAZOLE [Concomitant]
     Indication: CANDIDIASIS
     Route: 048
     Dates: start: 20110528, end: 20110530
  31. LEVOFLOXACIN [Concomitant]
     Indication: PNEUMOCYSTIS JIROVECI PNEUMONIA
     Route: 042
     Dates: start: 20110517, end: 20110523
  32. METOCLOPRAMIDE HYDROCHLORIDE [Concomitant]
     Indication: CYTOMEGALOVIRUS OESOPHAGITIS
     Route: 042
     Dates: start: 20110515, end: 20110517
  33. PRIMAQUINE [Concomitant]
     Indication: PNEUMOCYSTIS JIROVECI PNEUMONIA
     Route: 048
     Dates: start: 20110425, end: 20110430
  34. PYRAZINAMIDE [Concomitant]
     Indication: PULMONARY TUBERCULOSIS
     Route: 048
     Dates: start: 20110621, end: 20111014
  35. SULFAMETHOXAZOLE AND TRIMETHOPRIM [Concomitant]
     Route: 042
     Dates: start: 20110502, end: 20110516
  36. MEROPENEM [Concomitant]
     Indication: PNEUMOCYSTIS JIROVECI PNEUMONIA
     Route: 042
     Dates: start: 20110508, end: 20110510
  37. METFORMIN HYDROCHLORIDE [Concomitant]
     Route: 048
     Dates: start: 20110909
  38. METOCLOPRAMIDE HYDROCHLORIDE [Concomitant]
     Route: 042
     Dates: start: 20110531, end: 20110603

REACTIONS (9)
  - DELIRIUM [None]
  - PNEUMOCYSTIS JIROVECI PNEUMONIA [None]
  - DIZZINESS [None]
  - HICCUPS [None]
  - HYPERKALAEMIA [None]
  - ASTHENIA [None]
  - DIARRHOEA [None]
  - PANCYTOPENIA [None]
  - NEUTROPENIA [None]
